FAERS Safety Report 25056657 (Version 1)
Quarter: 2025Q1

REPORT INFORMATION
  Report Type: Spontaneous
  Country: US (occurrence: US)
  Receive Date: 20250310
  Receipt Date: 20250310
  Transmission Date: 20250408
  Serious: No
  Sender: SANOFI AVENTIS
  Company Number: US-SA-2025SA066504

PATIENT
  Age: 38 Year
  Sex: Male

DRUGS (6)
  1. REZUROCK [Suspect]
     Active Substance: BELUMOSUDIL
     Indication: Myelodysplastic syndrome
     Dosage: 200 MG, QD
     Route: 048
  2. ACYCLOVIR [Concomitant]
     Active Substance: ACYCLOVIR
  3. BACTRIM [Concomitant]
     Active Substance: SULFAMETHOXAZOLE\TRIMETHOPRIM
  4. JAKAFI [Concomitant]
     Active Substance: RUXOLITINIB
  5. URSODIOL [Concomitant]
     Active Substance: URSODIOL
  6. VORICONAZOLE [Concomitant]
     Active Substance: VORICONAZOLE

REACTIONS (1)
  - Product use in unapproved indication [Unknown]
